FAERS Safety Report 17130229 (Version 1)
Quarter: 2019Q4

REPORT INFORMATION
  Report Type: Spontaneous
  Country: US (occurrence: US)
  Receive Date: 20191209
  Receipt Date: 20191209
  Transmission Date: 20200122
  Serious: No
  Sender: FDA-Public Use
  Company Number: US-BAYER-2019-221862

PATIENT
  Sex: Male

DRUGS (1)
  1. MIRALAX [Suspect]
     Active Substance: POLYETHYLENE GLYCOL 3350
     Dosage: BETWEEN 1/2-3/4 DAILY WITH WATER
     Route: 048

REACTIONS (2)
  - Product use issue [Unknown]
  - Incorrect dose administered [Unknown]
